FAERS Safety Report 24766448 (Version 6)
Quarter: 2025Q2

REPORT INFORMATION
  Report Type: Spontaneous
  Country: US (occurrence: US)
  Receive Date: 20241223
  Receipt Date: 20250506
  Transmission Date: 20250717
  Serious: Yes (Hospitalization)
  Sender: PFIZER
  Company Number: US-PFIZER INC-PV202400128424

PATIENT
  Age: 69 Year
  Sex: Female
  Weight: 67.392 kg

DRUGS (1)
  1. TUKYSA [Suspect]
     Active Substance: TUCATINIB
     Indication: Breast cancer female
     Dosage: 300 MG, 2X/DAY
     Route: 048

REACTIONS (2)
  - Pneumonia [Unknown]
  - Weight decreased [Not Recovered/Not Resolved]
